FAERS Safety Report 17729794 (Version 1)
Quarter: 2020Q2

REPORT INFORMATION
  Report Type: Spontaneous
  Country: JP (occurrence: JP)
  Receive Date: 20200430
  Receipt Date: 20200430
  Transmission Date: 20200714
  Serious: Yes (Other)
  Sender: FDA-Public Use
  Company Number: JP-PFIZER INC-2020171107

PATIENT
  Sex: Female

DRUGS (5)
  1. LYRICA [Suspect]
     Active Substance: PREGABALIN
     Indication: TRIGEMINAL NERVE DISORDER
     Dosage: 75 MG, 2X/DAY
     Route: 048
     Dates: start: 201911, end: 202003
  2. LOXONIN [Concomitant]
     Active Substance: LOXOPROFEN SODIUM
     Indication: FACIAL PAIN
  3. LYRICA [Suspect]
     Active Substance: PREGABALIN
     Indication: FACIAL PAIN
  4. BISOPROLOL FUMARATE. [Concomitant]
     Active Substance: BISOPROLOL FUMARATE
     Dosage: UNK
  5. LOXONIN [Concomitant]
     Active Substance: LOXOPROFEN SODIUM
     Indication: TRIGEMINAL NERVE DISORDER
     Dosage: UNK

REACTIONS (10)
  - Renal function test abnormal [Unknown]
  - Appetite disorder [Unknown]
  - Arrhythmia [Unknown]
  - Constipation [Unknown]
  - Palpitations [Unknown]
  - Gait disturbance [Recovering/Resolving]
  - Micturition frequency decreased [Recovering/Resolving]
  - Weight increased [Recovering/Resolving]
  - Oedema peripheral [Unknown]
  - Cardiac failure [Unknown]

NARRATIVE: CASE EVENT DATE: 202001
